FAERS Safety Report 10053179 (Version 2)
Quarter: 2014Q2

REPORT INFORMATION
  Report Type: Spontaneous
  Country: US (occurrence: US)
  Receive Date: 20140402
  Receipt Date: 20140402
  Transmission Date: 20141212
  Serious: Yes (Hospitalization)
  Sender: FDA-Public Use
  Company Number: US-GLAXOSMITHKLINE-A0768755A

PATIENT
  Age: 69 Year
  Sex: Female
  Weight: 67.3 kg

DRUGS (4)
  1. AVANDIA [Suspect]
     Indication: DIABETES MELLITUS
     Dosage: 4MG PER DAY
     Route: 048
     Dates: start: 1999, end: 2007
  2. GLUCOTROL [Concomitant]
  3. LIPITOR [Concomitant]
  4. TENORMIN [Concomitant]

REACTIONS (4)
  - Myocardial infarction [Not Recovered/Not Resolved]
  - Angina unstable [Unknown]
  - Atrial fibrillation [Unknown]
  - Coronary artery disease [Unknown]
